FAERS Safety Report 6195818-1 (Version None)
Quarter: 2009Q2

REPORT INFORMATION
  Report Type: 
  Country: None (occurrence: None)
  Receive Date: 20090520
  Receipt Date: 20080922
  Transmission Date: 20091009
  Serious: Yes (Other)
  Sender: FDA-Public Use
  Company Number: GB-BAXTER-2008BH010020

PATIENT
  Sex: Female

DRUGS (12)
  1. TRAVASOL 10% W/ ELECTROLYTES [Suspect]
     Indication: GASTROINTESTINAL DISORDER
     Route: 042
     Dates: start: 20050704
  2. CALCIUM CHLORIDE [Suspect]
     Indication: GASTROINTESTINAL DISORDER
     Route: 042
     Dates: start: 20050704
  3. DEXAMETHASONE 4MG TAB [Suspect]
     Indication: GASTROINTESTINAL DISORDER
     Route: 042
     Dates: start: 20050704
  4. DEXTROSE 30% IN PLASTIC CONTAINER [Suspect]
     Indication: GASTROINTESTINAL DISORDER
     Route: 042
     Dates: start: 20050704
  5. MAGNESIUM SULFATE [Suspect]
     Indication: GASTROINTESTINAL DISORDER
     Route: 042
     Dates: start: 20050704
  6. POTASSIUM CHLORIDE 0.15% IN DEXTROSE 5% [Suspect]
     Indication: GASTROINTESTINAL DISORDER
     Route: 042
     Dates: start: 20050704
  7. SODIUM CHLORIDE [Suspect]
     Indication: GASTROINTESTINAL DISORDER
     Route: 042
     Dates: start: 20050704
  8. GLYCEROPHOSPHAT-NATRIUM-KONZENTRAT [Suspect]
     Indication: GASTROINTESTINAL DISORDER
     Route: 042
     Dates: start: 20050704
  9. VITAMINS [Suspect]
     Indication: GASTROINTESTINAL DISORDER
     Route: 042
     Dates: start: 20050704
  10. STERILE WATER FOR INJECTION IN PLASTIC CONTAINER [Suspect]
     Indication: GASTROINTESTINAL DISORDER
     Route: 042
     Dates: start: 20050704
  11. HEPARIN [Concomitant]
  12. SODIUM CHLORIDE 0.9% IN PLASTIC CONTAINER [Concomitant]

REACTIONS (1)
  - ANAPHYLACTIC REACTION [None]
